FAERS Safety Report 21612936 (Version 2)
Quarter: 2022Q4

REPORT INFORMATION
  Report Type: Report from Study
  Country: JP (occurrence: JP)
  Receive Date: 20221118
  Receipt Date: 20221207
  Transmission Date: 20230112
  Serious: Yes (Other)
  Sender: FDA-Public Use
  Company Number: JP-CELLTRION INC.-2022JP019036

PATIENT

DRUGS (17)
  1. INVESTIGATIONAL BIOSIMILARS [Suspect]
     Active Substance: INVESTIGATIONAL BIOSIMILARS
     Indication: HER2 positive gastric cancer
     Dosage: 480 MILLIGRAM, QD
     Route: 042
     Dates: start: 20210322, end: 20210322
  2. INVESTIGATIONAL BIOSIMILARS [Suspect]
     Active Substance: INVESTIGATIONAL BIOSIMILARS
     Dosage: 360 MILLIGRAM, QD
     Route: 042
     Dates: start: 20210419, end: 20210419
  3. INVESTIGATIONAL BIOSIMILARS [Suspect]
     Active Substance: INVESTIGATIONAL BIOSIMILARS
     Dosage: 360 MILLIGRAM, QD
     Route: 042
     Dates: start: 20210517, end: 20210517
  4. INVESTIGATIONAL BIOSIMILARS [Suspect]
     Active Substance: INVESTIGATIONAL BIOSIMILARS
     Dosage: 360 MILLIGRAM, QD
     Route: 042
     Dates: start: 20210705, end: 20210705
  5. INVESTIGATIONAL BIOSIMILARS [Suspect]
     Active Substance: INVESTIGATIONAL BIOSIMILARS
     Dosage: 360 MILLIGRAM, QD
     Route: 042
     Dates: start: 20210810, end: 20210810
  6. CISPLATIN [Suspect]
     Active Substance: CISPLATIN
     Indication: HER2 positive gastric cancer
     Dosage: 100 MILLIGRAM, QD
     Route: 042
     Dates: start: 20210322, end: 20210322
  7. CISPLATIN [Suspect]
     Active Substance: CISPLATIN
     Dosage: 95 MILLIGRAM, QD
     Route: 042
     Dates: start: 20210419, end: 20210419
  8. CISPLATIN [Suspect]
     Active Substance: CISPLATIN
     Dosage: 95 MILLIGRAM, QD
     Route: 042
     Dates: start: 20210517, end: 20210517
  9. CISPLATIN [Suspect]
     Active Substance: CISPLATIN
     Dosage: 95 MILLIGRAM, QD
     Route: 042
     Dates: start: 20210705, end: 20210705
  10. CISPLATIN [Suspect]
     Active Substance: CISPLATIN
     Dosage: 95 MILLIGRAM, QD
     Route: 042
     Dates: start: 20210810, end: 20210810
  11. CAPECITABINE [Suspect]
     Active Substance: CAPECITABINE
     Indication: HER2 positive gastric cancer
     Dosage: 3600 MILLIGRAM, QD
     Route: 048
     Dates: start: 20210322, end: 20210404
  12. CAPECITABINE [Suspect]
     Active Substance: CAPECITABINE
     Dosage: 3000 MILLIGRAM, QD
     Route: 048
     Dates: start: 20210419, end: 20210502
  13. CAPECITABINE [Suspect]
     Active Substance: CAPECITABINE
     Dosage: 3000 MILLIGRAM, QD
     Route: 048
     Dates: start: 20210517, end: 20210530
  14. CAPECITABINE [Suspect]
     Active Substance: CAPECITABINE
     Dosage: 2400 MILLIGRAM, QD
     Route: 048
     Dates: start: 20210705, end: 20210718
  15. CAPECITABINE [Suspect]
     Active Substance: CAPECITABINE
     Dosage: 2400 MILLIGRAM, QD
     Route: 048
     Dates: start: 20210810, end: 20210823
  16. EDOXABAN TOSYLATE [Concomitant]
     Active Substance: EDOXABAN TOSYLATE
     Indication: Hypertension
     Dosage: UNK
     Dates: start: 20161108
  17. TOVIAZ [Concomitant]
     Active Substance: FESOTERODINE FUMARATE
     Indication: Hypertonic bladder
     Dosage: UNK
     Dates: start: 20200714

REACTIONS (5)
  - Neutropenia [Recovered/Resolved]
  - Eczema [Not Recovered/Not Resolved]
  - Stomatitis [Not Recovered/Not Resolved]
  - Malaise [Not Recovered/Not Resolved]
  - Anaemia [Not Recovered/Not Resolved]

NARRATIVE: CASE EVENT DATE: 20210329
